FAERS Safety Report 17471406 (Version 1)
Quarter: 2020Q1

REPORT INFORMATION
  Report Type: Report from Study
  Country: None (occurrence: CA)
  Receive Date: 20200228
  Receipt Date: 20200228
  Transmission Date: 20200409
  Serious: Yes (Hospitalization, Other)
  Sender: FDA-Public Use
  Company Number: CA-ABBVIE-19K-028-3206349-00

PATIENT
  Age: 69 Year
  Sex: Male

DRUGS (2)
  1. IMBRUVICA [Suspect]
     Active Substance: IBRUTINIB
     Indication: CUTANEOUS LYMPHOMA
     Dosage: 140 MG CAPSULES 4 IN ONE DAY
     Route: 048
     Dates: start: 20180131
  2. IMBRUVICA [Suspect]
     Active Substance: IBRUTINIB
     Indication: LYMPHOMA
     Dosage: 140 MG CAPSULES 4 IN ONE DAY
     Route: 048
     Dates: start: 20180630, end: 20191204

REACTIONS (3)
  - Abdominal pain upper [Unknown]
  - Hospitalisation [Unknown]
  - Myocardial infarction [Unknown]

NARRATIVE: CASE EVENT DATE: 201911
